FAERS Safety Report 8088118-6 (Version None)
Quarter: 2012Q1

REPORT INFORMATION
  Report Type: 
  Country: None (occurrence: None)
  Receive Date: 20120131
  Receipt Date: 20120120
  Transmission Date: 20120608
  Serious: Yes (Hospitalization)
  Sender: FDA-Public Use
  Company Number: FR-BIOGENIDEC-2012BI002787

PATIENT
  Age: 52 Year
  Sex: Female

DRUGS (9)
  1. SODIUM CHLORIDE 0.9% [Concomitant]
  2. MIRTAZAPINE [Concomitant]
  3. SOLU-MEDROL [Concomitant]
     Dates: start: 20110601, end: 20110601
  4. TYSABRI [Suspect]
     Indication: MULTIPLE SCLEROSIS
     Route: 042
     Dates: start: 20080602, end: 20110420
  5. IMOVANE [Concomitant]
  6. OXAZEPAM [Concomitant]
  7. EDUCTYL [Concomitant]
  8. SOLU-MEDROL [Concomitant]
     Indication: MULTIPLE SCLEROSIS
     Dates: start: 20110501, end: 20110501
  9. ACETAMINOPHEN [Concomitant]
     Route: 042

REACTIONS (1)
  - ANAL ABSCESS [None]
